FAERS Safety Report 8310421 (Version 2)
Quarter: 2012Q4

REPORT INFORMATION
  Report Type: Report from Study
  Country: CA (occurrence: CA)
  Receive Date: 20111223
  Receipt Date: 20121108
  Transmission Date: 20130627
  Serious: Yes (Hospitalization, Other)
  Sender: FDA-Public Use
  Company Number: CA-BRISTOL-MYERS SQUIBB COMPANY-15417397

PATIENT
  Age: 68 Year
  Sex: Female

DRUGS (1)
  1. BELATACEPT [Suspect]
     Indication: RENAL TRANSPLANT
     Route: 042
     Dates: start: 20070311

REACTIONS (2)
  - Retinal detachment [Unknown]
  - Cytomegalovirus chorioretinitis [Recovered/Resolved with Sequelae]
